FAERS Safety Report 8392926-1 (Version None)
Quarter: 2012Q2

REPORT INFORMATION
  Report Type: 
  Country: None (occurrence: None)
  Receive Date: 20120529
  Receipt Date: 20120522
  Transmission Date: 20120825
  Serious: No
  Sender: FDA-Public Use
  Company Number: US-PFIZER INC-2012124232

PATIENT
  Sex: Female
  Weight: 77.098 kg

DRUGS (1)
  1. CORGARD [Suspect]
     Indication: HYPERTENSION
     Dosage: UNK
     Dates: start: 20120413, end: 20120401

REACTIONS (3)
  - PRURITUS [None]
  - PARAESTHESIA [None]
  - MIDDLE INSOMNIA [None]
